FAERS Safety Report 4276678-2 (Version None)
Quarter: 2004Q1

REPORT INFORMATION
  Report Type: 
  Country: None (occurrence: None)
  Receive Date: 20040120
  Receipt Date: 20040106
  Transmission Date: 20041129
  Serious: Yes (Other)
  Sender: FDA-Public Use
  Company Number: BR-JNJFOC-20040101474

PATIENT
  Age: 16 Year
  Sex: Female
  Weight: 58 kg

DRUGS (1)
  1. EVRA (NORELGESTROMIN/ ETHINYL ESTRADIOL) PATCH [Suspect]
     Indication: UNWANTED PREGNANCY
     Dosage: 1 DOSE(S), 3 IN 4 WEEK, TRANSDERMAL
     Route: 062
     Dates: start: 20031201

REACTIONS (1)
  - VAGINAL HAEMORRHAGE [None]
